FAERS Safety Report 17570093 (Version 3)
Quarter: 2022Q2

REPORT INFORMATION
  Report Type: Spontaneous
  Country: US (occurrence: US)
  Receive Date: 20200323
  Receipt Date: 20220512
  Transmission Date: 20220721
  Serious: Yes (Other)
  Sender: FDA-Public Use
  Company Number: US-BRISTOL-MYERS SQUIBB COMPANY-BMS-2020-022267

PATIENT
  Age: 77 Year
  Sex: Female
  Weight: 77.11 kg

DRUGS (5)
  1. OPDIVO [Suspect]
     Active Substance: NIVOLUMAB
     Indication: Malignant melanoma
     Dosage: UNK UNK, Q4WK
     Route: 065
  2. OPDIVO [Suspect]
     Active Substance: NIVOLUMAB
     Dosage: UNK
     Route: 065
     Dates: start: 201904
  3. OPDIVO [Suspect]
     Active Substance: NIVOLUMAB
     Dosage: UNK
     Route: 065
     Dates: start: 201911
  4. OPDIVO [Suspect]
     Active Substance: NIVOLUMAB
     Dosage: UNK
     Route: 065
     Dates: start: 201911
  5. OPDIVO [Suspect]
     Active Substance: NIVOLUMAB
     Dosage: UNK
     Route: 065
     Dates: start: 201904

REACTIONS (13)
  - Kidney infection [Unknown]
  - Melaena [Unknown]
  - Constipation [Unknown]
  - Bone pain [Unknown]
  - Myalgia [Unknown]
  - Asthenia [Unknown]
  - Arthritis [Unknown]
  - Walking aid user [Unknown]
  - Abnormal faeces [Unknown]
  - Arthropathy [Unknown]
  - Lower limb fracture [Unknown]
  - Radiation skin injury [Unknown]
  - Immune system disorder [Unknown]

NARRATIVE: CASE EVENT DATE: 20190401
